FAERS Safety Report 12310342 (Version 4)
Quarter: 2019Q1

REPORT INFORMATION
  Report Type: Report from Study
  Country: US (occurrence: US)
  Receive Date: 20160427
  Receipt Date: 20190319
  Transmission Date: 20190417
  Serious: Yes (Death, Hospitalization, Other)
  Sender: FDA-Public Use
  Company Number: US-JNJFOC-20160424204

PATIENT
  Age: 81 Year
  Sex: Male
  Weight: 57 kg

DRUGS (5)
  1. ZENPEP [Concomitant]
     Active Substance: PANCRELIPASE AMYLASE\PANCRELIPASE LIPASE\PANCRELIPASE PROTEASE
  2. COLCHICINE. [Concomitant]
     Active Substance: COLCHICINE
  3. IBRUTINIB [Suspect]
     Active Substance: IBRUTINIB
     Indication: THERAPY NAIVE
     Route: 048
     Dates: start: 20150507, end: 20160116
  4. ALLOPURINOL. [Concomitant]
     Active Substance: ALLOPURINOL
  5. IBRUTINIB [Suspect]
     Active Substance: IBRUTINIB
     Indication: CHRONIC LYMPHOCYTIC LEUKAEMIA
     Route: 048
     Dates: start: 20150507, end: 20160116

REACTIONS (3)
  - Oesophageal haemorrhage [Recovered/Resolved]
  - Metastatic neoplasm [Fatal]
  - Lung infection [Fatal]

NARRATIVE: CASE EVENT DATE: 20160122
